FAERS Safety Report 6710244-1 (Version None)
Quarter: 2010Q2

REPORT INFORMATION
  Report Type: 
  Country: None (occurrence: None)
  Receive Date: 20100504
  Receipt Date: 20100402
  Transmission Date: 20101027
  Serious: Yes (Other)
  Sender: FDA-Public Use
  Company Number: US-PFIZER INC-2007071145

PATIENT
  Sex: Female
  Weight: 48.98 kg

DRUGS (11)
  1. LYRICA [Suspect]
     Indication: CERVICOGENIC HEADACHE
     Dosage: 100 MG, 2X/DAY
     Route: 048
     Dates: start: 20060501
  2. LYRICA [Suspect]
     Indication: MIGRAINE
     Dosage: 50 MG, 2X/DAY
     Route: 048
  3. LYRICA [Suspect]
     Indication: PAIN IN EXTREMITY
  4. SINEQUAN [Suspect]
     Dosage: 75 MG, 1X/DAY
  5. KLONOPIN [Suspect]
     Dosage: 1 MG, 3X/DAY
  6. MILNACIPRAN [Suspect]
     Indication: PAIN
     Dosage: 50 MG, 1X/DAY
  7. MILNACIPRAN [Suspect]
     Indication: CERVICOGENIC HEADACHE
     Dosage: 100 MG, 1X/DAY
  8. SYNTHROID [Concomitant]
     Indication: GOITRE
     Dosage: UNK
  9. SYNTHROID [Concomitant]
     Indication: HYPOTHYROIDISM
  10. BOTOX [Concomitant]
  11. ISOMETHEPTENE [Concomitant]

REACTIONS (6)
  - CONFUSIONAL STATE [None]
  - DISTURBANCE IN ATTENTION [None]
  - FATIGUE [None]
  - MEMORY IMPAIRMENT [None]
  - MYALGIA [None]
  - SPINAL COLUMN INJURY [None]
